FAERS Safety Report 24539389 (Version 2)
Quarter: 2024Q4

REPORT INFORMATION
  Report Type: Report from Study
  Country: US (occurrence: US)
  Receive Date: 20241023
  Receipt Date: 20241105
  Transmission Date: 20250115
  Serious: Yes (Other)
  Sender: JAZZ
  Company Number: US-JAZZ PHARMACEUTICALS-2024-US-018720

PATIENT
  Sex: Male

DRUGS (4)
  1. EPIDIOLEX [Suspect]
     Active Substance: CANNABIDIOL
     Indication: Lennox-Gastaut syndrome
     Dosage: 10.9 MILLILITER, BID
     Route: 048
     Dates: start: 202408
  2. EPIDIOLEX [Suspect]
     Active Substance: CANNABIDIOL
     Dosage: 5.5 MILLILITER
  3. EPIDIOLEX [Suspect]
     Active Substance: CANNABIDIOL
     Dosage: AROUND 5 MILLILITER, BID
  4. EPIDIOLEX [Suspect]
     Active Substance: CANNABIDIOL
     Dosage: 2.5 MILLILITER, BID

REACTIONS (3)
  - Seizure [Not Recovered/Not Resolved]
  - Fall [Unknown]
  - Anger [Unknown]
